FAERS Safety Report 24183092 (Version 2)
Quarter: 2024Q3

REPORT INFORMATION
  Report Type: Report from Study
  Country: AT (occurrence: AT)
  Receive Date: 20240807
  Receipt Date: 20240809
  Transmission Date: 20241017
  Serious: Yes (Hospitalization)
  Sender: NOVARTIS
  Company Number: AT-002147023-NVSC2024AT158621

PATIENT
  Age: 76 Year
  Sex: Female
  Weight: 103 kg

DRUGS (4)
  1. PIQRAY [Suspect]
     Active Substance: ALPELISIB
     Indication: Ovarian cancer metastatic
     Dosage: 150 MG, QD
     Route: 048
     Dates: start: 20240606, end: 20240727
  2. PIQRAY [Suspect]
     Active Substance: ALPELISIB
     Indication: Serous cystadenocarcinoma ovary
  3. PIQRAY [Suspect]
     Active Substance: ALPELISIB
     Indication: Ovarian cancer recurrent
  4. PIQRAY [Suspect]
     Active Substance: ALPELISIB
     Indication: Ovarian cancer

REACTIONS (2)
  - Nephropathy [Recovered/Resolved]
  - Blood potassium increased [Recovered/Resolved]

NARRATIVE: CASE EVENT DATE: 20240726
